FAERS Safety Report 14945769 (Version 5)
Quarter: 2018Q3

REPORT INFORMATION
  Report Type: Spontaneous
  Country: BR (occurrence: BR)
  Receive Date: 20180529
  Receipt Date: 20180718
  Transmission Date: 20181010
  Serious: Yes (Other)
  Sender: FDA-Public Use
  Company Number: PHHY2018BR008452

PATIENT
  Age: 78 Year
  Sex: Female
  Weight: 83 kg

DRUGS (4)
  1. ACICLOVIR [Suspect]
     Active Substance: ACYCLOVIR
     Dosage: UNK
     Route: 048
     Dates: start: 20180529
  2. ACICLOVIR [Suspect]
     Active Substance: ACYCLOVIR
     Indication: HERPES ZOSTER
     Dosage: 400 MG, 10QD FOR 7 DAYS
     Route: 048
     Dates: start: 20180514, end: 20180521
  3. ACICLOVIR [Suspect]
     Active Substance: ACYCLOVIR
     Dosage: 2 DF, UNK
     Route: 048
     Dates: start: 20180521
  4. DORFLEX [Concomitant]
     Active Substance: CAFFEINE\DIPYRONE\ORPHENADRINE
     Indication: PRODUCT USED FOR UNKNOWN INDICATION
     Dosage: 3 DF, UNK
     Route: 065

REACTIONS (16)
  - Pain [Recovering/Resolving]
  - Malaise [Recovering/Resolving]
  - Back pain [Recovering/Resolving]
  - Abdominal distension [Recovering/Resolving]
  - Erythema [Recovering/Resolving]
  - Nervousness [Unknown]
  - Abdominal pain upper [Recovering/Resolving]
  - Drug ineffective [Recovering/Resolving]
  - Diverticulitis [Recovering/Resolving]
  - Constipation [Recovering/Resolving]
  - Nasopharyngitis [Unknown]
  - Rash [Recovering/Resolving]
  - Inflammation [Recovering/Resolving]
  - Insomnia [Unknown]
  - Condition aggravated [Unknown]
  - Onychomycosis [Unknown]

NARRATIVE: CASE EVENT DATE: 20180514
